FAERS Safety Report 10363276 (Version 1)
Quarter: 2014Q3

REPORT INFORMATION
  Report Type: Report from Study
  Country: US (occurrence: US)
  Receive Date: 20140805
  Receipt Date: 20140805
  Transmission Date: 20150326
  Serious: Yes (Hospitalization)
  Sender: FDA-Public Use
  Company Number: US-BRISTOL-MYERS SQUIBB COMPANY-21247481

PATIENT
  Age: 53 Year
  Sex: Male
  Weight: 89.2 kg

DRUGS (2)
  1. IPILIMUMAB [Suspect]
     Active Substance: IPILIMUMAB
     Indication: MALIGNANT MELANOMA
     Dosage: TOTAL DOSE:275.42 MG?LAST DOSE ON 18JUN2014?IND:3MG/KG IV ON D1
     Route: 042
     Dates: start: 20140416
  2. BEVACIZUMAB [Suspect]
     Active Substance: BEVACIZUMAB
     Indication: MALIGNANT MELANOMA
     Dosage: TOTAL DOSE:1377.11 MG?LAST DOSE ON 18JUN2014?IND: 15MG/KG IV ON DAY 1
     Route: 042
     Dates: start: 20140416

REACTIONS (4)
  - Hypophysitis [Recovered/Resolved with Sequelae]
  - Adrenal insufficiency [Recovered/Resolved with Sequelae]
  - Hypothyroidism [Recovered/Resolved with Sequelae]
  - Hyponatraemia [Recovered/Resolved with Sequelae]

NARRATIVE: CASE EVENT DATE: 20140718
